FAERS Safety Report 11790177 (Version 1)
Quarter: 2015Q4

REPORT INFORMATION
  Report Type: Spontaneous
  Country: FR (occurrence: FR)
  Receive Date: 20151201
  Receipt Date: 20151201
  Transmission Date: 20160305
  Serious: Yes (Other)
  Sender: FDA-Public Use
  Company Number: FR-AMGEN-FRASP2015115376

PATIENT
  Age: 64 Year
  Sex: Female

DRUGS (4)
  1. ERIBULIN [Concomitant]
     Active Substance: ERIBULIN
     Dosage: UNK
     Route: 042
     Dates: start: 20150608, end: 20151007
  2. SOLUPRED                           /00016201/ [Concomitant]
     Active Substance: PREDNISOLONE
     Dosage: 40 MG, MORNING
  3. XGEVA [Suspect]
     Active Substance: DENOSUMAB
     Indication: PRODUCT USED FOR UNKNOWN INDICATION
     Dosage: 120 MG, QD
     Route: 058
     Dates: start: 201506, end: 201510
  4. DUROGESIC [Concomitant]
     Active Substance: FENTANYL
     Dosage: 25 UNK, EVERY 72 HOURS
     Route: 062

REACTIONS (7)
  - Dysstasia [Unknown]
  - Asthenia [Unknown]
  - Metastases to bone [Unknown]
  - Myalgia [Recovering/Resolving]
  - Tremor [Unknown]
  - Abdominal pain upper [Recovered/Resolved]
  - Pain in extremity [Unknown]

NARRATIVE: CASE EVENT DATE: 20151024
